FAERS Safety Report 10433727 (Version 2)
Quarter: 2014Q4

REPORT INFORMATION
  Report Type: Spontaneous
  Country: FR (occurrence: FR)
  Receive Date: 20140905
  Receipt Date: 20141020
  Transmission Date: 20150528
  Serious: Yes (Hospitalization)
  Sender: FDA-Public Use
  Company Number: FR-SA-2014SA117716

PATIENT
  Age: 40 Year
  Sex: Female
  Weight: 93 kg

DRUGS (7)
  1. HEPARINE CHOAY [Suspect]
     Active Substance: HEPARIN SODIUM
     Indication: SURGERY
     Route: 042
     Dates: start: 20140721, end: 20140730
  2. COUMADINE [Concomitant]
     Active Substance: WARFARIN SODIUM
     Dosage: 5 MG
     Dates: end: 20140721
  3. ATENOLOL. [Concomitant]
     Active Substance: ATENOLOL
     Dosage: 50 MG
     Dates: end: 20140721
  4. ALDACTONE [Concomitant]
     Active Substance: SPIRONOLACTONE
     Dosage: 50 MG
     Dates: end: 20140721
  5. LOVENOX [Suspect]
     Active Substance: ENOXAPARIN SODIUM
     Indication: RHEUMATIC HEART DISEASE
     Route: 058
     Dates: start: 20140709, end: 20140720
  6. OFLOXACIN. [Concomitant]
     Active Substance: OFLOXACIN
     Dosage: 200 MG
     Dates: end: 20140721
  7. LASILIX [Concomitant]
     Active Substance: FUROSEMIDE
     Dates: end: 20140721

REACTIONS (3)
  - Deep vein thrombosis [Unknown]
  - Heparin-induced thrombocytopenia [Recovered/Resolved]
  - Cardiac valve replacement complication [Unknown]

NARRATIVE: CASE EVENT DATE: 20140721
